FAERS Safety Report 4383587-7 (Version None)
Quarter: 2004Q2

REPORT INFORMATION
  Report Type: 
  Country: None (occurrence: None)
  Receive Date: 20040618
  Receipt Date: 20040601
  Transmission Date: 20050107
  Serious: Yes (Other)
  Sender: FDA-Public Use
  Company Number: USA040668976

PATIENT
  Age: 80 Year
  Sex: Female

DRUGS (6)
  1. EVISTA [Suspect]
     Indication: OSTEOPOROSIS
     Dates: start: 20020101
  2. LANOXIN [Concomitant]
  3. ZOCOR [Concomitant]
  4. DIURETIC [Concomitant]
  5. MULTIVITAMIN [Concomitant]
  6. CELEBREX [Concomitant]

REACTIONS (7)
  - CONDITION AGGRAVATED [None]
  - DIZZINESS [None]
  - FALL [None]
  - OSTEOARTHRITIS [None]
  - PELVIC FRACTURE [None]
  - PHARMACEUTICAL PRODUCT COMPLAINT [None]
  - VISUAL ACUITY REDUCED [None]
